FAERS Safety Report 5579081-8 (Version None)
Quarter: 2008Q1

REPORT INFORMATION
  Report Type: 
  Country: None (occurrence: None)
  Receive Date: 20080102
  Receipt Date: 20071227
  Transmission Date: 20080703
  Serious: Yes (Life-Threatening, Disabling)
  Sender: FDA-Public Use
  Company Number: IT-ASTRAZENECA-2007SE06058

PATIENT
  Age: 12 Year
  Sex: Male
  Weight: 33 kg

DRUGS (19)
  1. FOSCAVIR [Suspect]
     Indication: CYTOMEGALOVIRUS INFECTION
     Route: 042
     Dates: start: 20071102, end: 20071102
  2. FOSCAVIR [Suspect]
     Route: 042
     Dates: start: 20071103, end: 20071103
  3. FOSCAVIR [Suspect]
     Route: 042
     Dates: start: 20071103, end: 20071103
  4. FOSCAVIR [Suspect]
     Route: 042
     Dates: start: 20071105, end: 20071105
  5. ACYCLOVIR [Concomitant]
     Route: 048
  6. DESAMETASONE [Concomitant]
  7. DIFLUCAN [Concomitant]
  8. CIPROXIN [Concomitant]
     Dates: start: 20071025, end: 20071104
  9. MEPRAL [Concomitant]
  10. PROZAC [Concomitant]
  11. NUREFLEX [Concomitant]
     Route: 048
  12. ROCALTROL [Concomitant]
  13. DEURSIL [Concomitant]
     Route: 048
  14. PERFALGAN [Concomitant]
     Route: 042
  15. CONTRAMAL [Concomitant]
  16. TRIMETON [Concomitant]
     Route: 051
  17. FLEBOCORTID [Concomitant]
     Indication: PREMEDICATION
     Route: 042
  18. CYTOTECT BIOTEST [Concomitant]
     Route: 042
  19. GLUCOSE [Concomitant]
     Indication: PROPHYLAXIS AGAINST DEHYDRATION
     Route: 042

REACTIONS (2)
  - BLOOD PRESSURE INCREASED [None]
  - CEREBRAL HAEMORRHAGE [None]
